FAERS Safety Report 8060030-8 (Version None)
Quarter: 2012Q1

REPORT INFORMATION
  Report Type: 
  Country: None (occurrence: None)
  Receive Date: 20120120
  Receipt Date: 20120117
  Transmission Date: 20120608
  Serious: Yes (Other)
  Sender: FDA-Public Use
  Company Number: PHEH2011US06102

PATIENT
  Sex: Female

DRUGS (6)
  1. LEVETIRACETAM [Concomitant]
     Dosage: 2 DF, UNK
  2. TOPAMAX [Concomitant]
     Dosage: 2 DF, UNK
  3. ADVIL MIGRAINE LIQUI-GELS [Concomitant]
  4. TEGRETOL-XR [Suspect]
     Dosage: 2 DF, UNK
  5. CARBAMAZEPINE [Suspect]
     Dosage: 2 DF, DAILY
  6. TEGRETOL-XR [Suspect]
     Dosage: UNK UKN, UNK
     Dates: start: 20070101

REACTIONS (6)
  - AMNESIA [None]
  - CONVULSION [None]
  - ASTHENIA [None]
  - HEADACHE [None]
  - PYREXIA [None]
  - DIZZINESS [None]
